FAERS Safety Report 5739895-8 (Version None)
Quarter: 2008Q2

REPORT INFORMATION
  Report Type: 
  Country: None (occurrence: None)
  Receive Date: 20080513
  Receipt Date: 20080502
  Transmission Date: 20081010
  Serious: Yes (Other)
  Sender: FDA-Public Use
  Company Number: 000#8#2008-00092

PATIENT
  Age: 80 Year
  Sex: Female

DRUGS (3)
  1. GLYCERYL TRINITRATE (DOSE UNKNOWN), UNKNOWN (GLYCERYL TRINITRATE) [Suspect]
     Indication: CHEST PAIN
     Dosage: SUBLINGUAL
     Route: 060
  2. BRONCHODILATORS [Concomitant]
  3. NARCOTICS [Concomitant]

REACTIONS (5)
  - DISEASE RECURRENCE [None]
  - DYSPNOEA [None]
  - FALL [None]
  - STRESS CARDIOMYOPATHY [None]
  - SYNCOPE [None]
